FAERS Safety Report 9354778 (Version 2)
Quarter: 2013Q3

REPORT INFORMATION
  Report Type: Spontaneous
  Country: US (occurrence: US)
  Receive Date: 20130619
  Receipt Date: 20130731
  Transmission Date: 20140515
  Serious: Yes (Hospitalization)
  Sender: FDA-Public Use
  Company Number: US-ROCHE-1237841

PATIENT
  Age: 74 Year
  Sex: Female

DRUGS (2)
  1. CELLCEPT [Suspect]
     Indication: MYASTHENIA GRAVIS
     Route: 048
  2. IVIG [Concomitant]

REACTIONS (2)
  - Myasthenia gravis [Not Recovered/Not Resolved]
  - Dyspnoea [Not Recovered/Not Resolved]
